FAERS Safety Report 4941842-3 (Version None)
Quarter: 2006Q1

REPORT INFORMATION
  Report Type: 
  Country: None (occurrence: None)
  Receive Date: 20060313
  Receipt Date: 20060303
  Transmission Date: 20060701
  Serious: Yes (Other)
  Sender: FDA-Public Use
  Company Number: NO-ABBOTT-06P-122-0327080-00

PATIENT
  Sex: Male

DRUGS (3)
  1. SEVORANE [Suspect]
     Indication: INDUCTION OF ANAESTHESIA
     Dates: start: 20060106, end: 20060106
  2. MIDAZOLAM [Suspect]
     Indication: PREMEDICATION
     Dates: start: 20060106, end: 20060106
  3. THIOPENTAL SODIUM [Suspect]
     Indication: PREMEDICATION
     Dates: start: 20060106, end: 20060106

REACTIONS (5)
  - ERYTHEMA [None]
  - HEART RATE INCREASED [None]
  - INCREASED UPPER AIRWAY SECRETION [None]
  - TRYPTASE INCREASED [None]
  - VENTRICULAR TACHYCARDIA [None]
